FAERS Safety Report 10557666 (Version 2)
Quarter: 2015Q1

REPORT INFORMATION
  Report Type: Spontaneous
  Country: US (occurrence: US)
  Receive Date: 20141031
  Receipt Date: 20150119
  Transmission Date: 20150720
  Serious: Yes (Hospitalization, Other)
  Sender: FDA-Public Use
  Company Number: US-BAYER-2014-160070

PATIENT
  Age: 34 Year
  Sex: Female
  Weight: 78.5 kg

DRUGS (5)
  1. MIRENA [Suspect]
     Active Substance: LEVONORGESTREL
     Indication: CONTRACEPTION
     Dosage: 20 MCG/24HR, CONT
     Route: 015
     Dates: start: 20080528, end: 20130326
  2. FAMOTIDINE. [Concomitant]
     Active Substance: FAMOTIDINE
  3. IBUPROFEN. [Concomitant]
     Active Substance: IBUPROFEN
  4. OMEPRAZOLE. [Concomitant]
     Active Substance: OMEPRAZOLE
  5. VICODIN [Concomitant]
     Active Substance: ACETAMINOPHEN\HYDROCODONE BITARTRATE

REACTIONS (12)
  - Injury [None]
  - Scar [None]
  - Device issue [None]
  - Infertility female [None]
  - Uterine perforation [None]
  - Depressed mood [None]
  - Abdominal injury [None]
  - Anxiety [None]
  - Device defective [None]
  - Emotional distress [None]
  - Dyspareunia [None]
  - Pain [None]

NARRATIVE: CASE EVENT DATE: 201001
